FAERS Safety Report 24019482 (Version 3)
Quarter: 2024Q3

REPORT INFORMATION
  Report Type: Spontaneous
  Country: US (occurrence: US)
  Receive Date: 20240627
  Receipt Date: 20240712
  Transmission Date: 20241017
  Serious: Yes (Hospitalization, Other)
  Sender: ROCHE
  Company Number: US-ROCHE-10000003582

PATIENT
  Sex: Male
  Weight: 92.53 kg

DRUGS (13)
  1. NUTROPIN AQ [Suspect]
     Active Substance: SOMATROPIN
     Indication: Growth hormone deficiency
     Dosage: 10MG /2ML
     Route: 058
  2. INSULIN NOS [Concomitant]
     Active Substance: INSULIN NOS
     Indication: Type 2 diabetes mellitus
  3. RIVOTRIL [Concomitant]
     Active Substance: CLONAZEPAM
  4. ASPIRIN [Concomitant]
     Active Substance: ASPIRIN
  5. LEVOTHYROXINE SODIUM [Concomitant]
     Active Substance: LEVOTHYROXINE SODIUM
     Dosage: ONCE IN THE MORNING
  6. HYDROCORTISONE [Concomitant]
     Active Substance: HYDROCORTISONE\HYDROCORTISONE ACETATE
  7. NOVOLOG [Concomitant]
     Active Substance: INSULIN ASPART
     Indication: Type 2 diabetes mellitus
  8. VENLAFAXINE [Concomitant]
     Active Substance: VENLAFAXINE HYDROCHLORIDE
     Indication: Depression
  9. REMERON [Concomitant]
     Active Substance: MIRTAZAPINE
     Indication: Depression
  10. TRAVOPROST [Concomitant]
     Active Substance: TRAVOPROST
     Indication: Glaucoma
     Dosage: 0.4 MCG
  11. VITAMIN B12 [Concomitant]
     Active Substance: CYANOCOBALAMIN
  12. MAGNESIUM [Concomitant]
     Active Substance: MAGNESIUM
  13. VITAMIN D3 [Concomitant]
     Active Substance: CHOLECALCIFEROL

REACTIONS (19)
  - Cerebrovascular accident [Unknown]
  - Myocardial infarction [Unknown]
  - Blood glucose abnormal [Unknown]
  - Basal ganglia stroke [Unknown]
  - Drug ineffective [Unknown]
  - Product dose omission issue [Unknown]
  - Pituitary tumour [Unknown]
  - Feeling abnormal [Unknown]
  - Asthenia [Unknown]
  - Lethargy [Unknown]
  - Hypersomnia [Unknown]
  - Myocardial infarction [Unknown]
  - Chest pain [Unknown]
  - Fall [Unknown]
  - Orthostatic hypertension [Unknown]
  - Dizziness [Unknown]
  - Asthenia [Unknown]
  - Blood cholesterol increased [Unknown]
  - Prostatism [Unknown]
